FAERS Safety Report 5702636-4 (Version None)
Quarter: 2008Q2

REPORT INFORMATION
  Report Type: 
  Country: None (occurrence: None)
  Receive Date: 20080411
  Receipt Date: 20080402
  Transmission Date: 20081010
  Serious: Yes (Death)
  Sender: FDA-Public Use
  Company Number: DE-BAYER-200815987GPV

PATIENT
  Age: 57 Year
  Sex: Male

DRUGS (4)
  1. NEBIDO [Suspect]
     Indication: HYPOGONADISM
     Dosage: UNIT DOSE: 1000 MG
     Route: 030
     Dates: start: 20070625, end: 20070806
  2. LEVITRA [Suspect]
     Indication: ERECTILE DYSFUNCTION
     Route: 065
     Dates: start: 20070320
  3. ALLOPURINOL [Concomitant]
     Indication: HYPERURICAEMIA
     Dosage: TOTAL DAILY DOSE: 200 MG
     Route: 048
     Dates: start: 20000101
  4. PROVAS COMP/VALSARTAN/HYDROCHLOROTHIAZIDE [Concomitant]
     Indication: HYPERTENSION
     Route: 065
     Dates: start: 20050301

REACTIONS (1)
  - COMPLETED SUICIDE [None]
